FAERS Safety Report 5220404-7 (Version None)
Quarter: 2007Q1

REPORT INFORMATION
  Report Type: 
  Country: None (occurrence: None)
  Receive Date: 20070125
  Receipt Date: 20070117
  Transmission Date: 20070707
  Serious: Yes (Hospitalization)
  Sender: FDA-Public Use
  Company Number: FR-ABBOTT-06P-056-0347529-00

PATIENT
  Age: 48 Year
  Sex: Male

DRUGS (2)
  1. KALETRA [Suspect]
     Indication: ACQUIRED IMMUNODEFICIENCY SYNDROME
     Route: 048
     Dates: start: 20040630
  2. NEVIRAPINE [Suspect]
     Indication: ACQUIRED IMMUNODEFICIENCY SYNDROME
     Route: 048
     Dates: start: 20040630

REACTIONS (4)
  - ATRIAL FIBRILLATION [None]
  - CYTOLYTIC HEPATITIS [None]
  - HEPATIC FUNCTION ABNORMAL [None]
  - MITRAL VALVE INCOMPETENCE [None]
